FAERS Safety Report 24323335 (Version 1)
Quarter: 2024Q3

REPORT INFORMATION
  Report Type: Spontaneous
  Country: US (occurrence: None)
  Receive Date: 20240913
  Receipt Date: 20240913
  Transmission Date: 20241017
  Serious: Yes (Life-Threatening)
  Sender: Public
  Company Number: None

PATIENT
  Age: 46 Year
  Sex: Female
  Weight: 54 kg

DRUGS (1)
  1. HYDROXYCHLOROQUINE [Suspect]
     Active Substance: HYDROXYCHLOROQUINE
     Dosage: FREQUENCY : DAILY;?

REACTIONS (5)
  - Cardiotoxicity [None]
  - Diastolic dysfunction [None]
  - Gastrointestinal motility disorder [None]
  - Constipation [None]
  - Therapy cessation [None]
